FAERS Safety Report 16771311 (Version 2)
Quarter: 2019Q3

REPORT INFORMATION
  Report Type: Spontaneous
  Country: IN (occurrence: IN)
  Receive Date: 20190904
  Receipt Date: 20190904
  Transmission Date: 20191005
  Serious: Yes (Hospitalization)
  Sender: FDA-Public Use
  Company Number: IN-PFIZER INC-2019370779

PATIENT
  Age: 60 Year
  Sex: Male

DRUGS (3)
  1. PEMETREXED. [Suspect]
     Active Substance: PEMETREXED
     Indication: NON-SMALL CELL LUNG CANCER STAGE IIIB
     Dosage: 500 MG/M2, CYCLIC (FOUR CYCLES)
     Dates: start: 20170629
  2. CARBOPLATIN. [Suspect]
     Active Substance: CARBOPLATIN
     Indication: NON-SMALL CELL LUNG CANCER STAGE IIIB
     Dosage: UNK (AUC 5 Q 21 DAYS FOR FOUR CYCLES)
     Dates: start: 20170629
  3. GEMCITABINE. [Suspect]
     Active Substance: GEMCITABINE
     Indication: NON-SMALL CELL LUNG CANCER STAGE IIIB
     Dosage: UNK, CYCLIC (STARTED ON THE THIRD CYCLE)
     Dates: start: 2017

REACTIONS (1)
  - Pancreatitis acute [Recovered/Resolved]
